FAERS Safety Report 25155023 (Version 2)
Quarter: 2025Q2

REPORT INFORMATION
  Report Type: Report from Study
  Country: US (occurrence: US)
  Receive Date: 20250403
  Receipt Date: 20250501
  Transmission Date: 20250717
  Serious: Yes (Hospitalization)
  Sender: PFIZER
  Company Number: US-PFIZER INC-202500014319

PATIENT
  Age: 83 Year
  Sex: Female

DRUGS (13)
  1. IBRANCE [Suspect]
     Active Substance: PALBOCICLIB
     Indication: Breast cancer female
     Route: 048
  2. IBRANCE [Suspect]
     Active Substance: PALBOCICLIB
  3. ALLOPURINOL [Concomitant]
     Active Substance: ALLOPURINOL
  4. ANASTROZOLE [Concomitant]
     Active Substance: ANASTROZOLE
  5. FAMOTIDINE [Concomitant]
     Active Substance: FAMOTIDINE
  6. FLUTICASONE [Concomitant]
     Active Substance: FLUTICASONE
  7. LATANOPROST [Concomitant]
     Active Substance: LATANOPROST
  8. OLMESARTAN [Concomitant]
     Active Substance: OLMESARTAN
  9. OZEMPIC [Concomitant]
     Active Substance: SEMAGLUTIDE
  10. ROSUVASTATIN [Concomitant]
     Active Substance: ROSUVASTATIN
  11. VITAMIN D3 [Concomitant]
     Active Substance: CHOLECALCIFEROL
  12. INFLUENZA VIRUS VACCINE [Concomitant]
     Active Substance: INFLUENZA VIRUS VACCINE
  13. DEXTROSE [Concomitant]
     Active Substance: DEXTROSE MONOHYDRATE

REACTIONS (6)
  - Urinary tract infection [Recovered/Resolved]
  - Haemoglobin decreased [Recovered/Resolved]
  - Product dose omission in error [Recovered/Resolved]
  - Nausea [Not Recovered/Not Resolved]
  - Asthenia [Recovering/Resolving]
  - Nasopharyngitis [Recovering/Resolving]

NARRATIVE: CASE EVENT DATE: 20250310
